FAERS Safety Report 15830911 (Version 1)
Quarter: 2019Q1

REPORT INFORMATION
  Report Type: Report from Study
  Country: None (occurrence: TR)
  Receive Date: 20190116
  Receipt Date: 20190116
  Transmission Date: 20190417
  Serious: Yes (Hospitalization)
  Sender: FDA-Public Use
  Company Number: TR-ABBVIE-19S-161-2621869-00

PATIENT
  Age: 64 Year
  Sex: Female

DRUGS (4)
  1. DUODOPA [Suspect]
     Active Substance: CARBIDOPA\LEVODOPA
     Indication: PARKINSON^S DISEASE
     Dosage: MD (ML): 5,00 CD (ML): 2,30 ED (ML): 1,00
     Route: 050
     Dates: start: 20190107
  2. PEXOLA [Concomitant]
     Active Substance: PRAMIPEXOLE DIHYDROCHLORIDE
     Indication: PARKINSON^S DISEASE
     Route: 048
     Dates: start: 2015
  3. CARDOPAN PLUS [Concomitant]
     Indication: HYPERTENSION
     Route: 048
  4. DOPADEX SR [Concomitant]
     Indication: PARKINSON^S DISEASE
     Route: 048
     Dates: start: 201806

REACTIONS (1)
  - Lung infection [Not Recovered/Not Resolved]

NARRATIVE: CASE EVENT DATE: 20190110
